FAERS Safety Report 13156979 (Version 2)
Quarter: 2017Q1

REPORT INFORMATION
  Report Type: Spontaneous
  Country: JP (occurrence: JP)
  Receive Date: 20170127
  Receipt Date: 20170217
  Transmission Date: 20170428
  Serious: Yes (Other)
  Sender: FDA-Public Use
  Company Number: US-ASTRAZENECA-2017SE09195

PATIENT
  Age: 57 Year
  Sex: Female

DRUGS (1)
  1. ECARD HD [Suspect]
     Active Substance: CANDESARTAN CILEXETIL\HYDROCHLOROTHIAZIDE
     Indication: HYPERTENSION
     Dosage: DOSE UNKNOWN
     Route: 048

REACTIONS (2)
  - Loss of consciousness [Recovering/Resolving]
  - Hyponatraemia [Recovering/Resolving]
